FAERS Safety Report 16811284 (Version 3)
Quarter: 2019Q3

REPORT INFORMATION
  Report Type: Spontaneous
  Country: DE (occurrence: DE)
  Receive Date: 20190916
  Receipt Date: 20190918
  Transmission Date: 20191005
  Serious: Yes (Other)
  Sender: FDA-Public Use
  Company Number: DE-JNJFOC-20190905085

PATIENT
  Age: 15 Year
  Sex: Male

DRUGS (10)
  1. VINCRISTINE [Concomitant]
     Active Substance: VINCRISTINE
     Indication: SARCOMA
  2. IFOSFAMIDE. [Suspect]
     Active Substance: IFOSFAMIDE
     Indication: PARANEOPLASTIC NEUROLOGICAL SYNDROME
     Dosage: VAIA POLYCHEMOTHERAPY
     Route: 065
  3. IFOSFAMIDE. [Suspect]
     Active Substance: IFOSFAMIDE
     Indication: SARCOMA
  4. CAELYX [Suspect]
     Active Substance: DOXORUBICIN HYDROCHLORIDE
     Indication: PARANEOPLASTIC NEUROLOGICAL SYNDROME
     Route: 065
  5. ACTINOMYCIN D [Concomitant]
     Active Substance: DACTINOMYCIN
     Indication: SARCOMA
  6. METHYLPREDNISOLONE. [Suspect]
     Active Substance: METHYLPREDNISOLONE
     Indication: POLYNEUROPATHY IN MALIGNANT DISEASE
     Route: 065
  7. METHYLPREDNISOLONE. [Suspect]
     Active Substance: METHYLPREDNISOLONE
     Indication: SARCOMA
  8. CAELYX [Suspect]
     Active Substance: DOXORUBICIN HYDROCHLORIDE
     Indication: SARCOMA
  9. ACTINOMYCIN D [Concomitant]
     Active Substance: DACTINOMYCIN
     Indication: PARANEOPLASTIC NEUROLOGICAL SYNDROME
     Route: 065
  10. VINCRISTINE [Concomitant]
     Active Substance: VINCRISTINE
     Indication: PARANEOPLASTIC NEUROLOGICAL SYNDROME
     Dosage: RECEIVED TEN DOSES (1.5MG/M2, MAXIMAL DOSE 2 MG)
     Route: 065

REACTIONS (9)
  - Encephalopathy [Unknown]
  - Cardiomyopathy [Unknown]
  - Somnolence [Unknown]
  - Electrolyte imbalance [Unknown]
  - Hallucination [Unknown]
  - Product use in unapproved indication [Unknown]
  - Nephropathy [Unknown]
  - Dizziness [Unknown]
  - Off label use [Unknown]
